FAERS Safety Report 9265927 (Version 1)
Quarter: 2013Q2

REPORT INFORMATION
  Report Type: Spontaneous
  Country: US (occurrence: US)
  Receive Date: 20130501
  Receipt Date: 20130501
  Transmission Date: 20140414
  Serious: Yes (Other)
  Sender: FDA-Public Use
  Company Number: CHPA2013US007137

PATIENT
  Age: 82 Year
  Sex: Female

DRUGS (7)
  1. MAALOX ANTACID/ANTIGAS RS LIQ COOL MINT [Suspect]
     Indication: GASTROINTESTINAL DISORDER
     Dosage: 1 TBSP, PRN
     Route: 048
  2. MAALOX ANTACID/ANTIGAS RS LIQ COOL MINT [Suspect]
     Indication: GASTROOESOPHAGEAL REFLUX DISEASE
  3. TUMS [Concomitant]
  4. MYLANTA                                 /AUS/ [Concomitant]
  5. VITAMIN D [Concomitant]
  6. ATENOLOL [Concomitant]
  7. SPIRONOLACTONE [Concomitant]

REACTIONS (4)
  - Hypertension [Unknown]
  - Off label use [Unknown]
  - Incorrect drug administration duration [Unknown]
  - Wrong technique in drug usage process [Unknown]
